FAERS Safety Report 14892683 (Version 1)
Quarter: 2018Q2

REPORT INFORMATION
  Report Type: Spontaneous
  Country: DE (occurrence: DE)
  Receive Date: 20180514
  Receipt Date: 20180514
  Transmission Date: 20180711
  Serious: Yes (Hospitalization, Other)
  Sender: FDA-Public Use
  Company Number: DE-GLAXOSMITHKLINE-DE2018080066

PATIENT
  Age: 59 Year
  Sex: Female

DRUGS (3)
  1. MARCUMAR [Suspect]
     Active Substance: PHENPROCOUMON
     Indication: PRODUCT USED FOR UNKNOWN INDICATION
     Dosage: 3 MG, NACH INR
     Route: 065
  2. IBUPROFEN. [Suspect]
     Active Substance: IBUPROFEN
     Indication: PRODUCT USED FOR UNKNOWN INDICATION
     Dosage: 600 MG, 3 X /WEEK
     Route: 065
  3. DICLOFENAC [Suspect]
     Active Substance: DICLOFENAC
     Indication: PRODUCT USED FOR UNKNOWN INDICATION
     Dosage: 3 X /WEEK
     Route: 065

REACTIONS (7)
  - Dizziness [Unknown]
  - Dyspnoea [Unknown]
  - Medication monitoring error [Unknown]
  - Haematochezia [Unknown]
  - Drug prescribing error [Unknown]
  - Anaemia [Unknown]
  - General physical health deterioration [Unknown]
